FAERS Safety Report 17895344 (Version 1)
Quarter: 2020Q2

REPORT INFORMATION
  Report Type: Other
  Country: US (occurrence: US)
  Receive Date: 20200615
  Receipt Date: 20200615
  Transmission Date: 20200714
  Serious: Yes (Hospitalization)
  Sender: FDA-Public Use
  Company Number: US-NUVO PHARMACEUTICALS INC-2085849

PATIENT
  Age: 22 Year
  Sex: Male

DRUGS (5)
  1. TAURINE [Suspect]
     Active Substance: TAURINE
     Route: 065
  2. LEVOTHYROXINE SODIUM. [Suspect]
     Active Substance: LEVOTHYROXINE SODIUM
     Route: 065
  3. DINITROPHENOL [Suspect]
     Active Substance: 2,4-DINITROPHENOL
     Route: 065
  4. HYDROXYZINE HYDROCHLORIDE. [Suspect]
     Active Substance: HYDROXYZINE HYDROCHLORIDE
     Indication: SUPPLEMENTATION THERAPY
     Route: 065
  5. CREATINE MONOHYDRATE [Suspect]
     Active Substance: CREATINE MONOHYDRATE
     Route: 065

REACTIONS (5)
  - Confusional state [Unknown]
  - Tremor [Unknown]
  - Overdose [Unknown]
  - Hyperthermia [Recovered/Resolved]
  - Hyperhidrosis [Unknown]
